FAERS Safety Report 15786596 (Version 5)
Quarter: 2019Q1

REPORT INFORMATION
  Report Type: Spontaneous
  Country: BR (occurrence: BR)
  Receive Date: 20190103
  Receipt Date: 20190313
  Transmission Date: 20190417
  Serious: Yes (Death, Hospitalization, Other)
  Sender: FDA-Public Use
  Company Number: BR-BAYER-2018-084537

PATIENT
  Age: 34 Year
  Sex: Female

DRUGS (3)
  1. MIRENA [Suspect]
     Active Substance: LEVONORGESTREL
  2. DEXAMETHASONE. [Concomitant]
     Active Substance: DEXAMETHASONE
  3. MIRENA [Suspect]
     Active Substance: LEVONORGESTREL
     Indication: CONTRACEPTION
     Dosage: 20 MCG/24HR, CONT
     Route: 015
     Dates: start: 20140205

REACTIONS (13)
  - Haemorrhagic anaemia [Fatal]
  - Abortion threatened [None]
  - Shock haemorrhagic [Fatal]
  - Placenta praevia [None]
  - Pregnancy with contraceptive device [Recovered/Resolved]
  - Mydriasis [Fatal]
  - Drug ineffective [None]
  - Placenta accreta [Fatal]
  - Genital haemorrhage [None]
  - Vaginal haemorrhage [None]
  - Placenta praevia haemorrhage [None]
  - Abdominal pain [None]
  - Vaginal discharge [None]

NARRATIVE: CASE EVENT DATE: 20180423
